FAERS Safety Report 9308363 (Version 1)
Quarter: 2013Q2

REPORT INFORMATION
  Report Type: Spontaneous
  Country: LV (occurrence: LV)
  Receive Date: 20130524
  Receipt Date: 20130524
  Transmission Date: 20140414
  Serious: Yes (Death, Hospitalization)
  Sender: FDA-Public Use
  Company Number: LV-VIIV HEALTHCARE LIMITED-B0893604A

PATIENT
  Age: 31 Year
  Sex: Male

DRUGS (2)
  1. COMBIVIR [Suspect]
     Indication: HIV INFECTION
     Dosage: 600MG PER DAY
     Route: 048
     Dates: start: 201109, end: 201201
  2. LOPINAVIR + RITONAVIR [Concomitant]
     Indication: HIV INFECTION
     Route: 048
     Dates: start: 201109, end: 201201

REACTIONS (5)
  - Encephalitis [Fatal]
  - Hydrocephalus [Fatal]
  - Headache [Unknown]
  - Nausea [Unknown]
  - Cryptococcosis [Unknown]
